FAERS Safety Report 7586536-3 (Version None)
Quarter: 2011Q3

REPORT INFORMATION
  Report Type: 
  Country: None (occurrence: None)
  Receive Date: 20110701
  Receipt Date: 20110624
  Transmission Date: 20111222
  Serious: Yes (Hospitalization, Other)
  Sender: FDA-Public Use
  Company Number: US-CEPHALON-2011003418

PATIENT
  Sex: Female
  Weight: 118 kg

DRUGS (10)
  1. DIOVAN [Concomitant]
     Dates: start: 20081201
  2. PROVIGIL [Suspect]
     Indication: SLEEP APNOEA SYNDROME
     Route: 048
     Dates: start: 20070628
  3. TOPROL-XL [Concomitant]
     Dates: start: 20081201
  4. PLAQUENIL [Concomitant]
  5. PROVIGIL [Suspect]
     Indication: CIRCADIAN RHYTHM SLEEP DISORDER
  6. LIPITOR [Concomitant]
     Indication: BLOOD CHOLESTEROL
     Dates: start: 20081201
  7. MEDFORMIN [Concomitant]
     Indication: DIABETES MELLITUS
     Dates: start: 20081201
  8. GLIPIZIDE [Concomitant]
     Dates: start: 20091201
  9. PLAVIX [Concomitant]
     Indication: CARDIAC DISORDER
     Dates: start: 20081201
  10. JANUVIA [Concomitant]
     Indication: DIABETES MELLITUS
     Dates: start: 20100701

REACTIONS (3)
  - DIABETES MELLITUS [None]
  - MYOCARDIAL INFARCTION [None]
  - DRUG TOLERANCE [None]
